FAERS Safety Report 20122925 (Version 2)
Quarter: 2022Q1

REPORT INFORMATION
  Report Type: Spontaneous
  Country: US (occurrence: US)
  Receive Date: 20211129
  Receipt Date: 20220222
  Transmission Date: 20220423
  Serious: No
  Sender: FDA-Public Use
  Company Number: US-UCBSA-2021010967

PATIENT
  Age: 30 Year
  Sex: Female

DRUGS (21)
  1. LACOSAMIDE [Suspect]
     Active Substance: LACOSAMIDE
     Indication: Status epilepticus
     Dosage: UNKNOWN DOSE
  2. LACOSAMIDE [Suspect]
     Active Substance: LACOSAMIDE
     Indication: Off label use
     Dosage: 400 MILLIGRAM, 3X/DAY (TID)
  3. LEVETIRACETAM [Suspect]
     Active Substance: LEVETIRACETAM
     Indication: Status epilepticus
     Dosage: UNKNOWN DOSE
  4. LEVETIRACETAM [Suspect]
     Active Substance: LEVETIRACETAM
     Indication: Off label use
  5. CARBAMAZEPINE [Suspect]
     Active Substance: CARBAMAZEPINE
     Indication: Status epilepticus
     Dosage: UNKNOWN DOSE
  6. CANNABIDIOL [Suspect]
     Active Substance: CANNABIDIOL
     Indication: Status epilepticus
     Dosage: UNKNOWN DOSE
  7. CLOBAZAM [Suspect]
     Active Substance: CLOBAZAM
     Indication: Status epilepticus
     Dosage: UNKNOWN DOSE
  8. FELBAMATE [Suspect]
     Active Substance: FELBAMATE
     Indication: Status epilepticus
     Dosage: UNKNOWN DOSE
  9. GABAPENTIN [Suspect]
     Active Substance: GABAPENTIN
     Indication: Status epilepticus
     Dosage: UNKNOWN DOSE
  10. KETAMINE [Suspect]
     Active Substance: KETAMINE
     Indication: Status epilepticus
     Dosage: UNKNOWN DOSE
  11. LIDOCAINE [Suspect]
     Active Substance: LIDOCAINE
     Indication: Status epilepticus
     Dosage: UNKNOWN DOSE
  12. LORAZEPAM [Suspect]
     Active Substance: LORAZEPAM
     Indication: Status epilepticus
     Dosage: UNKNOWN DOSE
  13. PERAMPANEL [Suspect]
     Active Substance: PERAMPANEL
     Indication: Status epilepticus
     Dosage: UNKNOWN DOSE
  14. PERAMPANEL [Suspect]
     Active Substance: PERAMPANEL
     Dosage: 12 MILLIGRAM DAILY
  15. PHENOBARBITAL [Suspect]
     Active Substance: PHENOBARBITAL
     Indication: Status epilepticus
     Dosage: UNKNOWN DOSE
  16. PHENOBARBITAL [Suspect]
     Active Substance: PHENOBARBITAL
     Dosage: 3 TIMES DAILY(121.5 MG DAILY TOTAL)
  17. PRECEDEX [Suspect]
     Active Substance: DEXMEDETOMIDINE HYDROCHLORIDE
     Indication: Status epilepticus
     Dosage: UNKNOWN DOSE
  18. PROPOFOL [Suspect]
     Active Substance: PROPOFOL
     Indication: Status epilepticus
     Dosage: UNKNOWN DOSE
  19. TOPIRAMATE [Suspect]
     Active Substance: TOPIRAMATE
     Indication: Status epilepticus
     Dosage: UNKNOWN DOSE
  20. BORTEZOMIB [Concomitant]
     Active Substance: BORTEZOMIB
     Indication: Encephalitis
     Dosage: UNKNOWN DOSE
  21. RITUXIMAB [Concomitant]
     Active Substance: RITUXIMAB
     Indication: Encephalitis
     Dosage: UNKNOWN DOSE

REACTIONS (2)
  - Multiple-drug resistance [Unknown]
  - Off label use [Unknown]
